FAERS Safety Report 7875107-7 (Version None)
Quarter: 2011Q4

REPORT INFORMATION
  Report Type: 
  Country: None (occurrence: None)
  Receive Date: 20111031
  Receipt Date: 20111020
  Transmission Date: 20120403
  Serious: Yes (Hospitalization, Other)
  Sender: FDA-Public Use
  Company Number: US-BIOGENIDEC-2008BI023480

PATIENT
  Age: 54 Year
  Sex: Female

DRUGS (1)
  1. AVONEX [Suspect]
     Indication: MULTIPLE SCLEROSIS
     Route: 030
     Dates: start: 20071113

REACTIONS (6)
  - COMA [None]
  - SCAR [None]
  - PLEURAL EFFUSION [None]
  - CALCIUM DEFICIENCY [None]
  - LUNG NEOPLASM MALIGNANT [None]
  - PERICARDIAL EFFUSION [None]
